FAERS Safety Report 7752805-7 (Version None)
Quarter: 2011Q3

REPORT INFORMATION
  Report Type: 
  Country: None (occurrence: None)
  Receive Date: 20110915
  Receipt Date: 20110909
  Transmission Date: 20111222
  Serious: Yes (Other)
  Sender: FDA-Public Use
  Company Number: US-ROCHE-802340

PATIENT
  Sex: Female

DRUGS (1)
  1. BONIVA [Suspect]
     Route: 065

REACTIONS (4)
  - MUSCLE SPASMS [None]
  - SPINAL FRACTURE [None]
  - OSTEOPOROSIS [None]
  - ASTHMA [None]
